FAERS Safety Report 4845424-3 (Version None)
Quarter: 2005Q4

REPORT INFORMATION
  Report Type: 
  Country: None (occurrence: None)
  Receive Date: 20051129
  Receipt Date: 20051115
  Transmission Date: 20060501
  Serious: Yes (Other)
  Sender: FDA-Public Use
  Company Number: 2005158397

PATIENT

DRUGS (4)
  1. VFEND [Suspect]
     Indication: ASPERGILLOSIS
  2. METRONIDAZOLE [Suspect]
     Indication: CLOSTRIDIUM COLITIS
  3. VANCOMYCIN [Suspect]
     Indication: CLOSTRIDIUM COLITIS
  4. CHEMOTHERAPY NOS (CHEMOTHERAPY NOS) [Concomitant]

REACTIONS (2)
  - COLITIS ISCHAEMIC [None]
  - EXTRAPYRAMIDAL DISORDER [None]
